FAERS Safety Report 8403628-7 (Version None)
Quarter: 2012Q2

REPORT INFORMATION
  Report Type: 
  Country: None (occurrence: None)
  Receive Date: 20120601
  Receipt Date: 20120523
  Transmission Date: 20120825
  Serious: No
  Sender: FDA-Public Use
  Company Number: US-B.I. PHARMACEUTICALS,INC./RIDGEFIELD-2012-BP-11507BP

PATIENT
  Sex: Male

DRUGS (1)
  1. ZANTAC [Suspect]
     Dates: end: 20120501

REACTIONS (1)
  - DRUG SCREEN FALSE POSITIVE [None]
